FAERS Safety Report 22141768 (Version 1)
Quarter: 2023Q1

REPORT INFORMATION
  Report Type: Spontaneous
  Country: GR (occurrence: GR)
  Receive Date: 20230327
  Receipt Date: 20230327
  Transmission Date: 20230418
  Serious: No
  Sender: FDA-Public Use
  Company Number: GR-PFIZER INC-202300120976

PATIENT
  Sex: Female

DRUGS (1)
  1. PAXLOVID [Suspect]
     Active Substance: NIRMATRELVIR\RITONAVIR
     Indication: COVID-19 treatment
     Dosage: 3 TIMES A DAY, 1 PINK  AND 1 WHITE. AT NOON 2 RED AND IN THE EVENING 1 PINK AND 1 WHITE

REACTIONS (1)
  - Incorrect dosage administered [Unknown]
